FAERS Safety Report 17289838 (Version 1)
Quarter: 2020Q1

REPORT INFORMATION
  Report Type: Spontaneous
  Country: US (occurrence: US)
  Receive Date: 20200120
  Receipt Date: 20200120
  Transmission Date: 20200409
  Serious: Yes (Hospitalization, Other)
  Sender: FDA-Public Use
  Company Number: US-BRISTOL-MYERS SQUIBB COMPANY-BMS-2018-125289

PATIENT
  Age: 76 Year
  Sex: Male
  Weight: 103 kg

DRUGS (10)
  1. COUMADIN [Suspect]
     Active Substance: WARFARIN SODIUM
     Indication: ATRIAL FIBRILLATION
     Dosage: 6 MILLIGRAM SUN AND FRI/ 3 MG ALL OTHER DAY
     Route: 048
     Dates: end: 20180322
  2. COUMADIN [Suspect]
     Active Substance: WARFARIN SODIUM
     Indication: PRODUCT USED FOR UNKNOWN INDICATION
     Dosage: UNK
     Route: 048
     Dates: start: 20180315
  3. LASIX [Suspect]
     Active Substance: FUROSEMIDE
     Indication: PRODUCT USED FOR UNKNOWN INDICATION
     Dosage: 40 MILLIGRAM, QD, 1 IN 1 D
     Route: 048
     Dates: start: 20180910
  4. AMIODARONE [Suspect]
     Active Substance: AMIODARONE
     Indication: ARRHYTHMIA
     Dosage: 400 MILLIGRAM, QD, 1 IN 1 D
     Route: 048
     Dates: start: 20180821, end: 20180910
  5. DEMADEX [Concomitant]
     Active Substance: TORSEMIDE
     Indication: POLYURIA
     Dosage: 30 MILLIGRAM, QD, 1 IN 1 D
     Route: 048
     Dates: start: 20181114
  6. ZAROXOLYN [Concomitant]
     Active Substance: METOLAZONE
     Indication: POLYURIA
     Dosage: 2.5 MILLIGRAM, QD, 1 IN 1 D
     Route: 065
     Dates: start: 20181121
  7. EMPAGLIFLOZIN [Suspect]
     Active Substance: EMPAGLIFLOZIN
     Indication: CARDIAC FAILURE CHRONIC
     Dosage: UNK
     Route: 048
     Dates: start: 20180202, end: 20180504
  8. LASIX [Suspect]
     Active Substance: FUROSEMIDE
     Indication: POLYURIA
     Dosage: 160 MILLIGRAM, QD, 1 IN 1 D
     Route: 048
     Dates: start: 20171130
  9. LASIX [Suspect]
     Active Substance: FUROSEMIDE
     Indication: CARDIAC FAILURE CONGESTIVE
     Dosage: 160 MILLIGRAM, QD, 1 IN 1 D
     Route: 048
     Dates: start: 20180815, end: 20180910
  10. INSULIN [Suspect]
     Active Substance: INSULIN NOS
     Indication: DIABETES MELLITUS
     Dosage: 45 INTERNATIONAL UNIT, QD, 1 IN 1 D
     Route: 058
     Dates: start: 20180412

REACTIONS (2)
  - Cardiac failure congestive [Not Recovered/Not Resolved]
  - Acute kidney injury [Recovered/Resolved]

NARRATIVE: CASE EVENT DATE: 20190101
